FAERS Safety Report 15906448 (Version 3)
Quarter: 2019Q4

REPORT INFORMATION
  Report Type: Report from Study
  Country: US (occurrence: US)
  Receive Date: 20190204
  Receipt Date: 20191202
  Transmission Date: 20200122
  Serious: Yes (Hospitalization, Other)
  Sender: FDA-Public Use
  Company Number: US-SA-2019SA025624

PATIENT
  Age: 65 Year
  Sex: Female

DRUGS (1)
  1. TERIFLUNOMIDE. [Suspect]
     Active Substance: TERIFLUNOMIDE
     Indication: MULTIPLE SCLEROSIS
     Dosage: 14 MG, QD
     Route: 048
     Dates: start: 20180801

REACTIONS (6)
  - Hypoaesthesia [Not Recovered/Not Resolved]
  - Malaise [Unknown]
  - Sepsis [Recovered/Resolved]
  - Nephrolithiasis [Recovered/Resolved]
  - Alopecia [Unknown]
  - Stress [Not Recovered/Not Resolved]

NARRATIVE: CASE EVENT DATE: 201911
